FAERS Safety Report 10521225 (Version 3)
Quarter: 2014Q4

REPORT INFORMATION
  Report Type: Spontaneous
  Country: US (occurrence: US)
  Receive Date: 20141016
  Receipt Date: 20141216
  Transmission Date: 20150528
  Serious: No
  Sender: FDA-Public Use
  Company Number: US-009507513-1410USA006296

PATIENT
  Age: 20 Year
  Sex: Female

DRUGS (2)
  1. NEXPLANON [Suspect]
     Active Substance: ETONOGESTREL
     Dosage: 68 MG/ ONE ROD INSERTED EVERY THREE YEARS/ LEFT ARM
     Route: 059
     Dates: start: 20141001
  2. NEXPLANON [Suspect]
     Active Substance: ETONOGESTREL
     Dosage: 68 MG/ ONE ROD INSERTED EVERY THREE YEARS/ FIRST IMPLANT/ LEFT ARM
     Route: 059
     Dates: start: 20141001, end: 20141001

REACTIONS (3)
  - No adverse event [Unknown]
  - Device difficult to use [Recovered/Resolved]
  - Product quality issue [Unknown]

NARRATIVE: CASE EVENT DATE: 20141001
